FAERS Safety Report 24959548 (Version 1)
Quarter: 2025Q1

REPORT INFORMATION
  Report Type: Spontaneous
  Country: US (occurrence: US)
  Receive Date: 20250212
  Receipt Date: 20250212
  Transmission Date: 20250409
  Serious: No
  Sender: ROCHE
  Company Number: US-ROCHE-10000201846

PATIENT
  Age: 66 Year
  Sex: Male
  Weight: 136.98 kg

DRUGS (5)
  1. RITUXAN [Suspect]
     Active Substance: RITUXIMAB
     Indication: Sarcoidosis
     Route: 042
  2. RITUXAN [Suspect]
     Active Substance: RITUXIMAB
     Indication: Arthritis
  3. RITUXAN [Suspect]
     Active Substance: RITUXIMAB
     Indication: Plasma cell myeloma
  4. TORSEMIDE [Concomitant]
     Active Substance: TORSEMIDE
     Indication: Fluid retention
  5. TORSEMIDE [Concomitant]
     Active Substance: TORSEMIDE

REACTIONS (7)
  - Weight fluctuation [Not Recovered/Not Resolved]
  - Fluid retention [Not Recovered/Not Resolved]
  - Peripheral swelling [Not Recovered/Not Resolved]
  - Joint swelling [Not Recovered/Not Resolved]
  - Pain [Not Recovered/Not Resolved]
  - Pruritus [Not Recovered/Not Resolved]
  - Off label use [Unknown]

NARRATIVE: CASE EVENT DATE: 20241001
